FAERS Safety Report 26007443 (Version 2)
Quarter: 2025Q4

REPORT INFORMATION
  Report Type: Spontaneous
  Country: US (occurrence: US)
  Receive Date: 20251106
  Receipt Date: 20251111
  Transmission Date: 20260118
  Serious: Yes (Life-Threatening, Hospitalization)
  Sender: PFIZER
  Company Number: US-PFIZER INC-PV202500130038

PATIENT
  Age: 6 Year
  Sex: Male

DRUGS (1)
  1. ZOLEDRONIC ACID [Suspect]
     Active Substance: ZOLEDRONIC ACID
     Indication: Osteogenesis imperfecta
     Dosage: 10 MG, VIA IV INFUSION, INTENDED DOSE WAS 0.47 MG
     Route: 042

REACTIONS (7)
  - Accidental overdose [Unknown]
  - Abdominal pain [Unknown]
  - Nausea [Unknown]
  - Bone pain [Unknown]
  - Sinus tachycardia [Unknown]
  - Off label use [Unknown]
  - Off label use [Unknown]
